FAERS Safety Report 19176295 (Version 1)
Quarter: 2021Q2

REPORT INFORMATION
  Report Type: Other
  Country: GB (occurrence: GB)
  Receive Date: 20210424
  Receipt Date: 20210424
  Transmission Date: 20210717
  Serious: Yes (Other)
  Sender: FDA-Public Use
  Company Number: GB-LUPIN PHARMACEUTICALS INC.-2021-04991

PATIENT
  Age: 37 Year
  Sex: Female
  Weight: 75 kg

DRUGS (7)
  1. MOMETASONE [Concomitant]
     Active Substance: MOMETASONE
     Indication: ILL-DEFINED DISORDER
     Dosage: UNK (TWO SPRAYS DAILY)
     Route: 065
     Dates: start: 20200821, end: 20210407
  2. SERTRALINE HYDROCHLORIDE TABLETS [Suspect]
     Active Substance: SERTRALINE HYDROCHLORIDE
     Indication: PRODUCT USED FOR UNKNOWN INDICATION
     Dosage: 01 DOSAGE FORM, QD (ONE IN MORNING)
     Route: 065
     Dates: start: 20200821, end: 20210407
  3. DOXYCYCLINE. [Concomitant]
     Active Substance: DOXYCYCLINE
     Dosage: 01 DOSAGE FORM, QD
     Route: 065
     Dates: start: 2021, end: 20210303
  4. FLUCONAZOLE. [Concomitant]
     Active Substance: FLUCONAZOLE
     Indication: ILL-DEFINED DISORDER
     Dosage: 01 DOSAGE FORM, AS DIRECTED
     Route: 065
     Dates: start: 20210224, end: 20210324
  5. SERTRALINE HYDROCHLORIDE TABLETS [Suspect]
     Active Substance: SERTRALINE HYDROCHLORIDE
     Dosage: 100 MILLIGRAM
     Route: 065
     Dates: start: 20210407
  6. DESOGESTREL [Concomitant]
     Active Substance: DESOGESTREL
     Indication: ILL-DEFINED DISORDER
     Dosage: 01 DOSAGE FORM, QD
     Route: 065
     Dates: start: 20200821
  7. DOXYCYCLINE. [Concomitant]
     Active Substance: DOXYCYCLINE
     Indication: ILL-DEFINED DISORDER
     Dosage: 02 DOSAGE FORM, QD
     Route: 065
     Dates: start: 20210224

REACTIONS (2)
  - Bruxism [Not Recovered/Not Resolved]
  - Insomnia [Not Recovered/Not Resolved]

NARRATIVE: CASE EVENT DATE: 20210407
